FAERS Safety Report 21205402 (Version 1)
Quarter: 2022Q3

REPORT INFORMATION
  Report Type: Spontaneous
  Country: PL (occurrence: PL)
  Receive Date: 20220812
  Receipt Date: 20220812
  Transmission Date: 20221026
  Serious: Yes (Other)
  Sender: FDA-Public Use
  Company Number: PL-MACLEODS PHARMACEUTICALS US LTD-MAC2022036798

PATIENT

DRUGS (1)
  1. TRIAMCINOLONE ACETONIDE [Suspect]
     Active Substance: TRIAMCINOLONE ACETONIDE
     Indication: Macular oedema
     Dosage: UNK (4 MG/0.1 ML), THE FOUR-YEAR FOLLOW-UP, THE PATIENT RECEIVED EIGHT TA INTRAVITREAL INJECTIONS

REACTIONS (1)
  - Central serous chorioretinopathy [Recovered/Resolved]
